FAERS Safety Report 7315862-8 (Version None)
Quarter: 2011Q1

REPORT INFORMATION
  Report Type: 
  Country: None (occurrence: None)
  Receive Date: 20110225
  Receipt Date: 20110215
  Transmission Date: 20110831
  Serious: Yes (Other)
  Sender: FDA-Public Use
  Company Number: US-ROCHE-734153

PATIENT
  Sex: Male
  Weight: 93 kg

DRUGS (5)
  1. ACCUTANE [Suspect]
     Route: 048
     Dates: start: 20030801, end: 20040301
  2. ACCUTANE [Suspect]
     Route: 048
     Dates: end: 20080101
  3. ACCUTANE [Suspect]
     Indication: ACNE
     Route: 048
     Dates: start: 19990901, end: 20000306
  4. ACCUTANE [Suspect]
     Route: 048
     Dates: start: 19880101
  5. ACCUTANE [Suspect]
     Route: 048
     Dates: start: 20081101, end: 20090601

REACTIONS (9)
  - LIP DRY [None]
  - COUGH [None]
  - HAEMORRHOIDS [None]
  - COLITIS ULCERATIVE [None]
  - XEROSIS [None]
  - EPISTAXIS [None]
  - INFLAMMATORY BOWEL DISEASE [None]
  - GASTROINTESTINAL INJURY [None]
  - DRY SKIN [None]
